FAERS Safety Report 5599805-3 (Version None)
Quarter: 2008Q1

REPORT INFORMATION
  Report Type: 
  Country: None (occurrence: None)
  Receive Date: 20080118
  Receipt Date: 20080118
  Transmission Date: 20080703
  Serious: No
  Sender: FDA-Public Use
  Company Number: None

PATIENT
  Age: 76 Year
  Sex: Male
  Weight: 52.6173 kg

DRUGS (2)
  1. FOSAMAX [Suspect]
     Dosage: 5MG  ONE TIME  PO
     Route: 048
  2. ACTONEL [Suspect]
     Dosage: 5MG ONE TIME PO
     Route: 048

REACTIONS (6)
  - DRUG INTOLERANCE [None]
  - GASTRIC DISORDER [None]
  - MIDDLE INSOMNIA [None]
  - MUSCLE DISORDER [None]
  - MYALGIA [None]
  - PAIN [None]
